FAERS Safety Report 4866111-1 (Version None)
Quarter: 2005Q4

REPORT INFORMATION
  Report Type: 
  Country: None (occurrence: None)
  Receive Date: 20051221
  Receipt Date: 20051212
  Transmission Date: 20060501
  Serious: Yes (Hospitalization)
  Sender: FDA-Public Use
  Company Number: 2005154101

PATIENT
  Age: 64 Year
  Sex: Female
  Weight: 69.8539 kg

DRUGS (13)
  1. AROMASIN [Suspect]
     Indication: BREAST CANCER FEMALE
     Dosage: 25 MG (25 MG, DAILY), ORAL
     Route: 048
     Dates: start: 20050901, end: 20051110
  2. DRUG, UNSPECIFIED (DRUG, UNSPECIFIED) [Concomitant]
  3. LEVOFLOXACIN [Concomitant]
  4. MEDROL [Concomitant]
  5. MESTINON [Concomitant]
  6. ATROPINE [Concomitant]
  7. NORVASC [Concomitant]
  8. ALESION (EPINASTINE HYDROCHLORIDE) [Concomitant]
  9. MAGNESIUM OXIDE (MAGNESIUM OXIDE) [Concomitant]
  10. GASTROM (ECABET MONOSODIUM) [Concomitant]
  11. ALENDRONATE SODIUM [Concomitant]
  12. MUCODYNE (CARBOCISTEINE) [Concomitant]
  13. LANSOPRAZOLE [Concomitant]

REACTIONS (3)
  - BLOOD ALKALINE PHOSPHATASE INCREASED [None]
  - GAMMA-GLUTAMYLTRANSFERASE INCREASED [None]
  - HEPATIC FUNCTION ABNORMAL [None]
